FAERS Safety Report 18163014 (Version 1)
Quarter: 2020Q3

REPORT INFORMATION
  Report Type: Report from Study
  Country: US (occurrence: US)
  Receive Date: 20200818
  Receipt Date: 20200818
  Transmission Date: 20201103
  Serious: Yes (Hospitalization)
  Sender: FDA-Public Use
  Company Number: US-TAKEDA-2020TUS034749

PATIENT
  Sex: Female

DRUGS (2)
  1. BORTEZOMIB. [Suspect]
     Active Substance: BORTEZOMIB
     Indication: PLASMA CELL MYELOMA
  2. BORTEZOMIB. [Suspect]
     Active Substance: BORTEZOMIB
     Indication: WHITE BLOOD CELL COUNT DECREASED
     Dosage: UNK
     Route: 065

REACTIONS (2)
  - Osteomyelitis [Unknown]
  - Off label use [Unknown]
